FAERS Safety Report 6992185-8 (Version None)
Quarter: 2010Q3

REPORT INFORMATION
  Report Type: 
  Country: None (occurrence: None)
  Receive Date: 20100917
  Receipt Date: 20100812
  Transmission Date: 20110219
  Serious: No
  Sender: FDA-Public Use
  Company Number: A0875558A

PATIENT
  Age: 59 Year
  Sex: Female

DRUGS (1)
  1. PROMACTA [Suspect]
     Indication: IDIOPATHIC THROMBOCYTOPENIC PURPURA
     Dosage: 75MG PER DAY
     Route: 048
     Dates: start: 20091201

REACTIONS (3)
  - HYPOAESTHESIA [None]
  - NERVOUS SYSTEM DISORDER [None]
  - PARAESTHESIA [None]
